FAERS Safety Report 7392140-2 (Version None)
Quarter: 2011Q2

REPORT INFORMATION
  Report Type: 
  Country: None (occurrence: None)
  Receive Date: 20110404
  Receipt Date: 20110325
  Transmission Date: 20111010
  Serious: Yes (Hospitalization)
  Sender: FDA-Public Use
  Company Number: A0907723A

PATIENT
  Age: 53 Year
  Sex: Female

DRUGS (2)
  1. UNKNOWN [Concomitant]
  2. RYTHMOL [Suspect]
     Dosage: 325MG TWICE PER DAY
     Route: 048

REACTIONS (1)
  - SPEECH DISORDER [None]
